FAERS Safety Report 26182420 (Version 1)
Quarter: 2025Q4

REPORT INFORMATION
  Report Type: Spontaneous
  Country: EU (occurrence: EU)
  Receive Date: 20251221
  Receipt Date: 20251221
  Transmission Date: 20260118
  Serious: Yes (Other)
  Sender: MERCK SHARP & DOHME LLC
  Company Number: EU-009507513-2362912

PATIENT
  Sex: Female

DRUGS (2)
  1. PEMBROLIZUMAB [Suspect]
     Active Substance: PEMBROLIZUMAB
     Indication: Endometrial cancer metastatic
  2. LENVATINIB [Suspect]
     Active Substance: LENVATINIB
     Indication: Endometrial cancer metastatic

REACTIONS (2)
  - Large intestine perforation [Recovered/Resolved]
  - Therapy partial responder [Unknown]
